FAERS Safety Report 6709843-2 (Version None)
Quarter: 2010Q2

REPORT INFORMATION
  Report Type: 
  Country: None (occurrence: None)
  Receive Date: 20100504
  Receipt Date: 20100429
  Transmission Date: 20101027
  Serious: Yes (Hospitalization)
  Sender: FDA-Public Use
  Company Number: A0857303A

PATIENT
  Age: 50 Year
  Sex: Female

DRUGS (13)
  1. ADVAIR DISKUS 100/50 [Suspect]
     Indication: ASTHMA
     Dosage: 1PUFF TWICE PER DAY
     Route: 055
     Dates: start: 20010101
  2. FLONASE [Suspect]
     Indication: NASAL CONGESTION
     Dosage: 1SPR TWICE PER DAY
     Route: 045
     Dates: start: 20000101
  3. ZANTAC [Suspect]
     Dosage: 150MG TWICE PER DAY
     Route: 048
     Dates: start: 19980101
  4. LITHIUM CARBONATE [Concomitant]
  5. SEROQUEL [Concomitant]
  6. LEVOTHYROXINE [Concomitant]
  7. ALPRAZOLAM [Concomitant]
  8. PRAVASTATIN [Concomitant]
  9. TEMAZEPAM [Concomitant]
  10. CYCLOBENZAPRINE [Concomitant]
  11. ALBUTEROL SULATE [Concomitant]
  12. PERCOCET [Concomitant]
  13. UNSPECIFIED MEDICATION [Concomitant]

REACTIONS (1)
  - PNEUMONIA [None]
